FAERS Safety Report 10069734 (Version 2)
Quarter: 2014Q2

REPORT INFORMATION
  Report Type: Report from Study
  Country: US (occurrence: US)
  Receive Date: 20140410
  Receipt Date: 20140506
  Transmission Date: 20141212
  Serious: Yes (Other)
  Sender: FDA-Public Use
  Company Number: US-ROCHE-1380415

PATIENT
  Age: 47 Year
  Sex: Female
  Weight: 73.55 kg

DRUGS (6)
  1. KADCYLA [Suspect]
     Indication: BREAST CANCER METASTATIC
     Route: 042
     Dates: start: 20140114
  2. NEULASTA [Concomitant]
     Route: 065
     Dates: start: 20140115
  3. XGEVA [Concomitant]
     Indication: METASTASES TO BONE
     Route: 058
     Dates: start: 2013
  4. LUPRON [Concomitant]
     Indication: OVARIAN FAILURE
     Route: 030
     Dates: start: 20140114
  5. VITAMIN C [Concomitant]
     Indication: NUTRITIONAL SUPPLEMENTATION
     Route: 042
     Dates: start: 20140113
  6. ONDANSETRON [Concomitant]
     Indication: NAUSEA
     Route: 048

REACTIONS (5)
  - Eye haemorrhage [Not Recovered/Not Resolved]
  - Corneal disorder [Not Recovered/Not Resolved]
  - Dry eye [Not Recovered/Not Resolved]
  - Metastases to bone [Not Recovered/Not Resolved]
  - Metastases to central nervous system [Not Recovered/Not Resolved]
